FAERS Safety Report 16432061 (Version 1)
Quarter: 2019Q2

REPORT INFORMATION
  Report Type: Spontaneous
  Country: IT (occurrence: IT)
  Receive Date: 20190614
  Receipt Date: 20190614
  Transmission Date: 20190711
  Serious: Yes (Life-Threatening)
  Sender: FDA-Public Use
  Company Number: IT-SA-2019SA159031

PATIENT
  Age: 77 Year
  Sex: Male
  Weight: 70 kg

DRUGS (3)
  1. LYSINE ASPIRIN [Concomitant]
     Active Substance: ASPIRIN DL-LYSINE
     Indication: PRODUCT USED FOR UNKNOWN INDICATION
     Dosage: UNK UNK, UNK
     Route: 065
  2. OXALIPLATIN. [Suspect]
     Active Substance: OXALIPLATIN
     Indication: GASTRIC NEOPLASM
     Dosage: 155.5 MG, TOTAL
     Route: 042
     Dates: start: 20190529, end: 20190529
  3. SPIRIVA [Concomitant]
     Active Substance: TIOTROPIUM BROMIDE MONOHYDRATE
     Indication: CHRONIC OBSTRUCTIVE PULMONARY DISEASE
     Dosage: UNK UNK, UNK
     Route: 065

REACTIONS (4)
  - Cardiac arrest [Recovered/Resolved]
  - Dyspnoea [Recovered/Resolved]
  - Pallor [Recovered/Resolved]
  - Flushing [Recovered/Resolved]

NARRATIVE: CASE EVENT DATE: 20190529
